FAERS Safety Report 6461761-3 (Version None)
Quarter: 2009Q4

REPORT INFORMATION
  Report Type: 
  Country: None (occurrence: None)
  Receive Date: 20091130
  Receipt Date: 20091117
  Transmission Date: 20100525
  Serious: Yes (Other)
  Sender: FDA-Public Use
  Company Number: PHHY2009AT46733

PATIENT
  Sex: Male
  Weight: 103 kg

DRUGS (4)
  1. GALVUS [Suspect]
     Indication: DIABETES MELLITUS
     Dosage: 50 MG, BID
     Route: 048
     Dates: start: 20081120, end: 20081222
  2. DIOVAN [Suspect]
     Dosage: 2 X 80 MG
  3. SELOKEN [Suspect]
     Dosage: 2 X 49.5 MG
  4. CIPRALEX                                /DEN/ [Suspect]
     Dosage: 10 MG, UNK

REACTIONS (2)
  - DEPRESSION [None]
  - SUICIDAL IDEATION [None]
